FAERS Safety Report 8505539-5 (Version None)
Quarter: 2012Q3

REPORT INFORMATION
  Report Type: 
  Country: None (occurrence: None)
  Receive Date: 20120712
  Receipt Date: 20120703
  Transmission Date: 20120928
  Serious: Yes (Hospitalization, Other)
  Sender: FDA-Public Use
  Company Number: DE-ELI_LILLY_AND_COMPANY-DE201207000564

PATIENT
  Sex: Male

DRUGS (4)
  1. FORTEO [Suspect]
     Indication: OSTEOPOROSIS
     Dosage: UNK
     Route: 058
     Dates: start: 20111221, end: 20120630
  2. AMLODIPINE [Concomitant]
     Indication: BLOOD PRESSURE
  3. SYMBICORT [Concomitant]
  4. PREDNISOLONE [Concomitant]
     Dosage: 2 MG, UNK

REACTIONS (5)
  - MUSCLE SPASMS [None]
  - PAIN IN EXTREMITY [None]
  - MYOCARDIAL INFARCTION [None]
  - SYNCOPE [None]
  - CIRCULATORY COLLAPSE [None]
